FAERS Safety Report 21690010 (Version 1)
Quarter: 2022Q4

REPORT INFORMATION
  Report Type: Spontaneous
  Country: US (occurrence: US)
  Receive Date: 20221206
  Receipt Date: 20221206
  Transmission Date: 20230113
  Serious: No
  Sender: FDA-Public Use
  Company Number: US-009507513-2211USA007013

PATIENT
  Age: 42 Year
  Sex: Male

DRUGS (1)
  1. ISENTRESS [Suspect]
     Active Substance: RALTEGRAVIR POTASSIUM
     Indication: Prophylaxis against HIV infection
     Dosage: 1 PILL DAILY FOR 28 DAYS
     Route: 048

REACTIONS (1)
  - Product prescribing issue [Unknown]

NARRATIVE: CASE EVENT DATE: 20221119
